FAERS Safety Report 19649672 (Version 1)
Quarter: 2021Q3

REPORT INFORMATION
  Report Type: Spontaneous
  Country: US (occurrence: US)
  Receive Date: 20210803
  Receipt Date: 20210803
  Transmission Date: 20211014
  Serious: Yes (Death, Other)
  Sender: FDA-Public Use
  Company Number: US-AUROBINDO-AUR-APL-2010-02674

PATIENT
  Age: 36 Year
  Sex: Male

DRUGS (1)
  1. METFORMIN [Suspect]
     Active Substance: METFORMIN HYDROCHLORIDE
     Indication: HYPERGLYCAEMIA
     Dosage: 500 MILLIGRAM, TWO TIMES A DAY
     Route: 065

REACTIONS (5)
  - Malaise [Unknown]
  - Multiple organ dysfunction syndrome [Fatal]
  - Hepatorenal syndrome [Not Recovered/Not Resolved]
  - Partial seizures [Unknown]
  - Lactic acidosis [Not Recovered/Not Resolved]
